FAERS Safety Report 5068517-7 (Version None)
Quarter: 2006Q3

REPORT INFORMATION
  Report Type: 
  Country: None (occurrence: None)
  Receive Date: 20060802
  Receipt Date: 20051104
  Transmission Date: 20061208
  Serious: No
  Sender: FDA-Public Use
  Company Number: US-BRISTOL-MYERS SQUIBB COMPANY-13169214

PATIENT
  Age: 83 Year
  Sex: Female

DRUGS (1)
  1. COUMADIN [Suspect]
     Indication: IMPLANTABLE DEFIBRILLATOR REPLACEMENT
     Dates: start: 20050701

REACTIONS (1)
  - EYE HAEMORRHAGE [None]
